FAERS Safety Report 21422270 (Version 2)
Quarter: 2022Q4

REPORT INFORMATION
  Report Type: Spontaneous
  Country: GB (occurrence: GB)
  Receive Date: 20221007
  Receipt Date: 20221020
  Transmission Date: 20230113
  Serious: Yes (Other)
  Sender: FDA-Public Use
  Company Number: GB-MYLANLABS-2022M1111054

PATIENT
  Age: 39 Year
  Sex: Male
  Weight: 68.4 kg

DRUGS (3)
  1. CLOZARIL [Suspect]
     Active Substance: CLOZAPINE
     Indication: Schizophrenia
     Dosage: 100 MILLIGRAM, AM (100MG MANE/250 MG NOCTE)
     Route: 048
     Dates: start: 20220421, end: 20220927
  2. CLOZARIL [Suspect]
     Active Substance: CLOZAPINE
     Dosage: 250 MILLIGRAM, HS (100MG MANE/250 MG NOCTE)
     Route: 048
     Dates: start: 20220421, end: 20220927
  3. LITHIUM [Suspect]
     Active Substance: LITHIUM
     Indication: Product used for unknown indication
     Dosage: 800 MILLIGRAM, HS (NOCTE)
     Route: 048
     Dates: start: 20220322, end: 20220714

REACTIONS (7)
  - Osteomyelitis [Unknown]
  - Post procedural infection [Recovered/Resolved]
  - Seizure [Recovering/Resolving]
  - Upper limb fracture [Unknown]
  - Abscess [Unknown]
  - White blood cell count decreased [Recovered/Resolved]
  - Neutrophil count decreased [Recovered/Resolved]

NARRATIVE: CASE EVENT DATE: 20220926
